FAERS Safety Report 8909700 (Version 2)
Quarter: 2012Q4

REPORT INFORMATION
  Report Type: Report from Study
  Country: DE (occurrence: DE)
  Receive Date: 20121115
  Receipt Date: 20121129
  Transmission Date: 20130627
  Serious: Yes (Hospitalization)
  Sender: FDA-Public Use
  Company Number: NL-GENZYME-CLOF-1002390

PATIENT
  Age: 8 Year
  Sex: Female
  Weight: 25 kg

DRUGS (4)
  1. EVOLTRA [Suspect]
     Indication: ACUTE MYELOID LEUKAEMIA RECURRENT
     Dosage: UNK
     Route: 065
  2. FLUCONAZOLE [Concomitant]
     Indication: PROPHYLAXIS
     Dosage: 125 mg, UNK
     Route: 048
     Dates: start: 20121017
  3. PANTOPRAZOLE [Concomitant]
     Indication: PROPHYLAXIS
     Dosage: 20 mg, UNK
     Route: 048
     Dates: start: 20121017
  4. AMPHOTERICIN [Concomitant]
     Indication: PROPHYLAXIS
     Dosage: 100 mg, UNK
     Route: 048
     Dates: start: 20121017

REACTIONS (1)
  - Pancytopenia [Recovered/Resolved]
